FAERS Safety Report 7232325-9 (Version None)
Quarter: 2011Q1

REPORT INFORMATION
  Report Type: 
  Country: None (occurrence: None)
  Receive Date: 20110119
  Receipt Date: 20110110
  Transmission Date: 20110831
  Serious: Yes (Other)
  Sender: FDA-Public Use
  Company Number: FR-AMGEN-FRASP2011002445

PATIENT

DRUGS (4)
  1. RIVOTRIL [Concomitant]
     Dosage: UNK
     Dates: start: 20101101
  2. DEROXAT [Concomitant]
     Dosage: UNK
     Dates: end: 20101101
  3. ENBREL [Suspect]
     Indication: ANKYLOSING SPONDYLITIS
     Dosage: UNK
     Route: 058
     Dates: start: 20050101
  4. OGAST [Concomitant]
     Dosage: UNK
     Route: 048
     Dates: start: 20030101

REACTIONS (1)
  - DIFFUSE CUTANEOUS MASTOCYTOSIS [None]
